FAERS Safety Report 9530823 (Version 1)
Quarter: 2013Q3

REPORT INFORMATION
  Report Type: Spontaneous
  Country: US (occurrence: None)
  Receive Date: 20130916
  Receipt Date: 20130916
  Transmission Date: 20140515
  Serious: Yes (Disabling)
  Sender: FDA-Public Use
  Company Number: None

PATIENT
  Age: 56 None
  Sex: 0

DRUGS (4)
  1. IBUPROFEN [Suspect]
     Indication: ARTHRITIS
  2. NASONEX [Concomitant]
  3. ALLEGRA [Concomitant]
  4. SINGULAIR [Concomitant]

REACTIONS (3)
  - Deafness unilateral [None]
  - Tympanic membrane perforation [None]
  - Tinnitus [None]
